FAERS Safety Report 4752967-X (Version None)
Quarter: 2005Q3

REPORT INFORMATION
  Report Type: 
  Country: None (occurrence: None)
  Receive Date: 20050825
  Receipt Date: 20050808
  Transmission Date: 20060218
  Serious: Yes (Hospitalization)
  Sender: FDA-Public Use
  Company Number: US_021290601

PATIENT
  Age: 52 Year
  Sex: Female
  Weight: 77 kg

DRUGS (7)
  1. ZYPREXA [Suspect]
     Indication: ANXIETY
     Dates: start: 19980901, end: 20020801
  2. ZYPREXA [Suspect]
     Indication: ANXIETY
     Dosage: 15 MG DAY
     Dates: start: 20050401
  3. LORAZEPAM [Concomitant]
  4. PAXIL [Concomitant]
  5. FLEXERIL [Concomitant]
  6. LEXAPRO [Concomitant]
  7. LAMICTAL [Concomitant]

REACTIONS (14)
  - ARTHRALGIA [None]
  - ASTHENIA [None]
  - BACK PAIN [None]
  - BLOOD PRESSURE INCREASED [None]
  - COGNITIVE DISORDER [None]
  - DISTURBANCE IN ATTENTION [None]
  - DYSKINESIA [None]
  - FEELING HOT [None]
  - FIBROMYALGIA [None]
  - FOOD CRAVING [None]
  - HYPOAESTHESIA [None]
  - TONGUE DISORDER [None]
  - WEIGHT DECREASED [None]
  - WEIGHT INCREASED [None]
